FAERS Safety Report 10022775 (Version 1)
Quarter: 2014Q1

REPORT INFORMATION
  Report Type: Spontaneous
  Country: US (occurrence: US)
  Receive Date: 20140319
  Receipt Date: 20140319
  Transmission Date: 20141002
  Serious: Yes (Other)
  Sender: FDA-Public Use
  Company Number: US-PFIZER INC-2014078456

PATIENT
  Sex: Female

DRUGS (1)
  1. EFFEXOR XR [Suspect]
     Dosage: UNK
     Dates: end: 201403

REACTIONS (5)
  - Suicidal ideation [Unknown]
  - Depression [Unknown]
  - Morbid thoughts [Unknown]
  - Drug ineffective [Unknown]
  - Somnolence [Unknown]
